FAERS Safety Report 24953377 (Version 1)
Quarter: 2025Q1

REPORT INFORMATION
  Report Type: Spontaneous
  Country: GB (occurrence: GB)
  Receive Date: 20250211
  Receipt Date: 20250211
  Transmission Date: 20250409
  Serious: Yes (Life-Threatening, Hospitalization, Other)
  Sender: HETERO
  Company Number: None

PATIENT

DRUGS (1)
  1. CITALOPRAM [Suspect]
     Active Substance: CITALOPRAM
     Indication: Product used for unknown indication
     Route: 065

REACTIONS (5)
  - Ventricular fibrillation [Unknown]
  - Cardiac arrest [Unknown]
  - Hypothermia [Unknown]
  - Electrocardiogram QT prolonged [Recovered/Resolved]
  - Supine position [Unknown]
